FAERS Safety Report 6745646-0 (Version None)
Quarter: 2010Q2

REPORT INFORMATION
  Report Type: 
  Country: None (occurrence: None)
  Receive Date: 20100528
  Receipt Date: 20100518
  Transmission Date: 20101027
  Serious: No
  Sender: FDA-Public Use
  Company Number: US-GILEAD-2010-0027807

PATIENT
  Sex: Male
  Weight: 74.91 kg

DRUGS (13)
  1. TRUVADA [Suspect]
     Indication: HIV INFECTION
  2. EPZICOM [Concomitant]
     Indication: HIV INFECTION
  3. ISENTRESS [Concomitant]
     Indication: HIV INFECTION
  4. INTELENCE [Concomitant]
     Indication: HIV INFECTION
  5. FUZEON [Concomitant]
     Indication: HIV INFECTION
  6. ZIAGEN [Concomitant]
     Indication: HIV INFECTION
  7. OXYDRENE [Concomitant]
  8. LORTAB [Concomitant]
  9. AMBIEN [Concomitant]
  10. ACYCLOVIR [Concomitant]
  11. FLOMAX [Concomitant]
  12. SEROSTEM [Concomitant]
  13. TESTOSTERONE [Concomitant]

REACTIONS (2)
  - HEADACHE [None]
  - POLYCYTHAEMIA [None]
